FAERS Safety Report 17160530 (Version 10)
Quarter: 2020Q1

REPORT INFORMATION
  Report Type: Report from Study
  Country: GB (occurrence: GB)
  Receive Date: 20191216
  Receipt Date: 20200327
  Transmission Date: 20200409
  Serious: Yes (Congenital Anomaly)
  Sender: FDA-Public Use
  Company Number: GB-B.I. PHARMACEUTICALS,INC./RIDGEFIELD-2019-BI-119350

PATIENT
  Sex: Male

DRUGS (2)
  1. EMTRICITABINE / TENOFOVIR DISOPROXIL FUMARATE [Suspect]
     Active Substance: EMTRICITABINE\TENOFOVIR DISOPROXIL FUMARATE
     Indication: HIV INFECTION
     Dosage: UNK
     Route: 064
  2. VIRAMUNE [Suspect]
     Active Substance: NEVIRAPINE
     Indication: HIV INFECTION
     Dosage: 400 MILLIGRAM, QD
     Route: 064

REACTIONS (3)
  - Speech disorder [Unknown]
  - Foetal exposure during pregnancy [Recovered/Resolved]
  - Developmental delay [Unknown]
